FAERS Safety Report 11695857 (Version 1)
Quarter: 2015Q4

REPORT INFORMATION
  Report Type: Spontaneous
  Country: NO (occurrence: NO)
  Receive Date: 20151104
  Receipt Date: 20151104
  Transmission Date: 20160304
  Serious: Yes (Disabling)
  Sender: FDA-Public Use
  Company Number: NO-ASTRAZENECA-2015SF04288

PATIENT
  Age: 50 Year
  Sex: Female

DRUGS (5)
  1. LOSEC [Suspect]
     Active Substance: OMEPRAZOLE
     Indication: GASTROOESOPHAGEAL REFLUX DISEASE
     Route: 048
     Dates: start: 20001026, end: 20010204
  2. SOBRIL [Concomitant]
     Active Substance: OXAZEPAM
     Indication: DYSTONIA
     Route: 048
     Dates: start: 201111
  3. RANITIDINE [Suspect]
     Active Substance: RANITIDINE\RANITIDINE HYDROCHLORIDE
     Indication: GASTROOESOPHAGEAL REFLUX DISEASE
     Dosage: 150-300 MG A DAY
     Route: 048
     Dates: start: 20010205, end: 20150528
  4. INDERAL [Concomitant]
     Active Substance: PROPRANOLOL HYDROCHLORIDE
     Indication: ESSENTIAL TREMOR
     Route: 048
     Dates: start: 200204, end: 2012
  5. RIVOTRIL [Concomitant]
     Active Substance: CLONAZEPAM
     Indication: DYSTONIA
     Route: 048
     Dates: start: 201403

REACTIONS (2)
  - Tremor [Recovering/Resolving]
  - Torticollis [Recovered/Resolved]

NARRATIVE: CASE EVENT DATE: 2000
